FAERS Safety Report 5684337-4 (Version None)
Quarter: 2008Q1

REPORT INFORMATION
  Report Type: 
  Country: None (occurrence: None)
  Receive Date: 20080328
  Receipt Date: 20080325
  Transmission Date: 20080703
  Serious: Yes (Hospitalization)
  Sender: FDA-Public Use
  Company Number: B0508226A

PATIENT
  Age: 77 Year
  Sex: Female
  Weight: 59 kg

DRUGS (13)
  1. PAXIL [Suspect]
     Indication: DEPRESSION
     Dosage: 10MG PER DAY
     Route: 048
     Dates: start: 20060704, end: 20060731
  2. PAXIL [Suspect]
     Dosage: 20MG PER DAY
     Route: 048
     Dates: start: 20060801, end: 20071105
  3. PAXIL [Suspect]
     Dosage: 10MG PER DAY
     Route: 048
     Dates: start: 20071106, end: 20071116
  4. AMOBAN [Concomitant]
     Indication: INSOMNIA
     Dosage: 7.5MG PER DAY
     Route: 048
     Dates: start: 20060801
  5. ALDACTONE [Concomitant]
     Dosage: 25MG PER DAY
     Route: 048
  6. ASPIRIN [Concomitant]
     Dosage: 100MG PER DAY
     Route: 048
  7. LIPITOR [Concomitant]
     Dosage: 10MG PER DAY
     Route: 048
  8. MAGMITT [Concomitant]
     Indication: CONSTIPATION
     Dosage: 1500MG PER DAY
     Route: 048
  9. GASMOTIN [Concomitant]
     Dosage: 15MG PER DAY
     Route: 048
  10. EURODIN [Concomitant]
     Indication: INSOMNIA
     Dosage: 1MG PER DAY
     Route: 048
     Dates: start: 20060801, end: 20060822
  11. LENDORMIN [Concomitant]
     Indication: INSOMNIA
     Dosage: .25MG PER DAY
     Route: 048
  12. ACUATIM [Concomitant]
     Indication: FOLLICULITIS
     Route: 061
     Dates: start: 20071023
  13. ALMETA [Concomitant]
     Indication: CHEILITIS
     Route: 061
     Dates: start: 20071023

REACTIONS (4)
  - BALANCE DISORDER [None]
  - GAIT DISTURBANCE [None]
  - NEURODEGENERATIVE DISORDER [None]
  - PARKINSONISM [None]
